FAERS Safety Report 8577021-0 (Version None)
Quarter: 2012Q3

REPORT INFORMATION
  Report Type: 
  Country: None (occurrence: None)
  Receive Date: 20120807
  Receipt Date: 20120725
  Transmission Date: 20120928
  Serious: Yes (Hospitalization)
  Sender: FDA-Public Use
  Company Number: FR-FRI-1000036978

PATIENT
  Age: 58 Year
  Sex: Male
  Weight: 62 kg

DRUGS (6)
  1. MILNACIPRAN [Suspect]
     Dosage: 50 MG
     Route: 048
     Dates: start: 20120705
  2. OXAZEPAM [Concomitant]
     Indication: ANXIOLYTIC THERAPY
     Dosage: 50 MG
     Dates: start: 20120331
  3. APIDRA [Concomitant]
  4. MILNACIPRAN [Suspect]
     Dosage: 75 MG
     Route: 048
     Dates: start: 20120501, end: 20120704
  5. MILNACIPRAN [Suspect]
     Indication: DEPRESSION
     Dosage: 100 MG
     Route: 048
     Dates: start: 20120430, end: 20120501
  6. LEVEMIR [Suspect]
     Route: 058
     Dates: start: 20120510

REACTIONS (4)
  - HYPERTENSION [None]
  - WEIGHT DECREASED [None]
  - PALPITATIONS [None]
  - MOOD ALTERED [None]
